FAERS Safety Report 21134362 (Version 1)
Quarter: 2022Q3

REPORT INFORMATION
  Report Type: Spontaneous
  Country: None (occurrence: US)
  Receive Date: 20220726
  Receipt Date: 20220726
  Transmission Date: 20221026
  Serious: Yes (Hospitalization)
  Sender: FDA-Public Use
  Company Number: US-AnazaoHealth Corporation-2131268

PATIENT
  Age: 66 Year
  Sex: Male
  Weight: 106.82 kg

DRUGS (19)
  1. TESTOSTERONE [Suspect]
     Active Substance: TESTOSTERONE
     Indication: Hypogonadism male
     Route: 058
     Dates: start: 20210801
  2. TESTOSTERONE [Suspect]
     Active Substance: TESTOSTERONE
     Indication: Malaise
  3. SILDENAFIL [Concomitant]
     Active Substance: SILDENAFIL
     Route: 048
  4. FENOFIBRATE [Concomitant]
     Active Substance: FENOFIBRATE
     Route: 048
  5. METFORMIN [Concomitant]
     Active Substance: METFORMIN HYDROCHLORIDE
     Route: 048
  6. GLIPIZIDE [Concomitant]
     Active Substance: GLIPIZIDE
     Route: 048
  7. ATENOLOL [Concomitant]
     Active Substance: ATENOLOL
     Route: 048
  8. LOSARTAN [Concomitant]
     Active Substance: LOSARTAN
     Route: 048
  9. IVERMECTIN [Concomitant]
     Active Substance: IVERMECTIN
     Route: 048
  10. Biote ADK 10 [Concomitant]
     Route: 048
  11. BIOTE DIM [Concomitant]
     Route: 048
  12. RLC Labs A-Drenal [Concomitant]
  13. Biote Arterosil [Concomitant]
     Route: 048
  14. APPLE CIDER VINEGAR [Concomitant]
     Active Substance: APPLE CIDER VINEGAR
     Route: 048
  15. Eco/Card Magnesium Taurate [Concomitant]
     Route: 048
  16. COENZYME Q10 [Concomitant]
     Active Substance: DIETARY SUPPLEMENT\UBIDECARENONE
     Route: 048
  17. Monolaurin [Concomitant]
     Route: 048
  18. FISH OIL [Concomitant]
     Active Substance: FISH OIL
     Route: 048
  19. ZINC PICOLINATE [Concomitant]
     Active Substance: ZINC PICOLINATE
     Route: 048

REACTIONS (1)
  - Myocardial infarction [Recovering/Resolving]

NARRATIVE: CASE EVENT DATE: 20220709
